FAERS Safety Report 9525218 (Version 1)
Quarter: 2013Q3

REPORT INFORMATION
  Report Type: Spontaneous
  Country: AT (occurrence: AT)
  Receive Date: 20130916
  Receipt Date: 20130916
  Transmission Date: 20140515
  Serious: Yes (Hospitalization)
  Sender: FDA-Public Use
  Company Number: AT-NOVOPROD-387248

PATIENT
  Sex: Female
  Weight: 68 kg

DRUGS (2)
  1. ESTROFEM [Suspect]
     Indication: MENOPAUSAL SYMPTOMS
     Dosage: 1 MG, SINGLE (DURATION OF DRUG ADMINISTRATION: 14 DAYS)
     Route: 065
  2. SORTIS [Concomitant]
     Indication: HYPERCHOLESTEROLAEMIA
     Dosage: 20 MG, QD

REACTIONS (2)
  - Migraine with aura [Recovered/Resolved]
  - Transient ischaemic attack [Recovered/Resolved]
